FAERS Safety Report 21909697 (Version 3)
Quarter: 2023Q1

REPORT INFORMATION
  Report Type: Spontaneous
  Country: NL (occurrence: NL)
  Receive Date: 20230125
  Receipt Date: 20230207
  Transmission Date: 20230418
  Serious: Yes (Other)
  Sender: FDA-Public Use
  Company Number: NL-BAYER-2023A008171

PATIENT
  Age: 32 Year
  Sex: Female
  Weight: 65 kg

DRUGS (1)
  1. MIRENA [Suspect]
     Active Substance: LEVONORGESTREL
     Indication: Contraception
     Dosage: 20?G/DAY
     Route: 015
     Dates: start: 2020

REACTIONS (5)
  - Embedded device [Recovered/Resolved with Sequelae]
  - Device breakage [Recovered/Resolved with Sequelae]
  - Complication of device removal [None]
  - Complication of device removal [None]
  - Complication of device removal [None]

NARRATIVE: CASE EVENT DATE: 20221213
